FAERS Safety Report 9934898 (Version 2)
Quarter: 2014Q1

REPORT INFORMATION
  Report Type: Spontaneous
  Country: US (occurrence: US)
  Receive Date: 20140228
  Receipt Date: 20140312
  Transmission Date: 20141002
  Serious: Yes (Hospitalization)
  Sender: FDA-Public Use
  Company Number: US-ACTELION-A-US2014-95158

PATIENT
  Age: 57 Year
  Sex: Male

DRUGS (4)
  1. OPSUMIT [Suspect]
     Indication: PULMONARY ARTERIAL HYPERTENSION
     Dosage: 10 MG, UNK
     Route: 048
     Dates: start: 201311
  2. REVATIO [Concomitant]
  3. WARFARIN [Concomitant]
  4. ADCIRCA [Concomitant]

REACTIONS (1)
  - Staphylococcal skin infection [Recovering/Resolving]
